FAERS Safety Report 20973075 (Version 1)
Quarter: 2022Q2

REPORT INFORMATION
  Report Type: Spontaneous
  Country: SE (occurrence: SE)
  Receive Date: 20220617
  Receipt Date: 20220617
  Transmission Date: 20220721
  Serious: Yes (Life-Threatening, Hospitalization, Disabling)
  Sender: FDA-Public Use
  Company Number: None

PATIENT

DRUGS (2)
  1. GRAZAX [Suspect]
     Active Substance: PHLEUM PRATENSE POLLEN
     Indication: Seasonal allergy
     Dosage: 1 DOSAGE FORM, QD
     Route: 060
     Dates: start: 20210428, end: 20220526
  2. IMDUR [Suspect]
     Active Substance: ISOSORBIDE MONONITRATE
     Indication: Tachycardia
     Dosage: 30 MILLIGRAM, QD
     Route: 048
     Dates: start: 20211030, end: 20220228

REACTIONS (4)
  - Syncope [Unknown]
  - Atrioventricular block [Recovered/Resolved with Sequelae]
  - Cardiac failure [Recovering/Resolving]
  - Drug interaction [Recovering/Resolving]

NARRATIVE: CASE EVENT DATE: 20220427
